FAERS Safety Report 7402205-4 (Version None)
Quarter: 2011Q2

REPORT INFORMATION
  Report Type: 
  Country: None (occurrence: None)
  Receive Date: 20110408
  Receipt Date: 20110401
  Transmission Date: 20111010
  Serious: Yes (Hospitalization)
  Sender: FDA-Public Use
  Company Number: CA-ELI_LILLY_AND_COMPANY-CA201104001292

PATIENT
  Sex: Female

DRUGS (1)
  1. HUMULIN N [Suspect]
     Indication: DIABETES MELLITUS
     Dosage: 8 U, UNK
     Dates: start: 20110329, end: 20110331

REACTIONS (4)
  - INJECTION SITE PAIN [None]
  - FATIGUE [None]
  - BLOOD GLUCOSE INCREASED [None]
  - CHEST PAIN [None]
